FAERS Safety Report 5820282-9 (Version None)
Quarter: 2008Q3

REPORT INFORMATION
  Report Type: 
  Country: None (occurrence: None)
  Receive Date: 20080724
  Receipt Date: 20071026
  Transmission Date: 20090109
  Serious: No
  Sender: FDA-Public Use
  Company Number: A0653523A

PATIENT
  Age: 76 Year
  Sex: Female
  Weight: 70.5 kg

DRUGS (12)
  1. AVANDIA [Suspect]
     Dosage: 4MG TWICE PER DAY
     Route: 048
     Dates: start: 19990101, end: 20070523
  2. PRANDIN [Concomitant]
     Dosage: 4MG THREE TIMES PER DAY
     Route: 048
  3. NORVASC [Concomitant]
     Dosage: 5MG PER DAY
     Route: 048
  4. BENICAR [Concomitant]
     Dosage: 40MG PER DAY
     Route: 048
  5. CALCIUM [Concomitant]
     Dosage: 500MG TWICE PER DAY
     Route: 048
  6. MULTI-VITAMIN [Concomitant]
     Dosage: 1TAB PER DAY
     Route: 048
  7. ACTONEL [Concomitant]
     Route: 048
  8. PROTONIX [Concomitant]
     Route: 048
  9. BENADRYL [Concomitant]
     Dosage: 25MG AS REQUIRED
     Route: 048
  10. TYLENOL [Concomitant]
  11. NIASPAN [Concomitant]
     Dosage: 500MG TWICE PER DAY
     Route: 048
  12. LESCOL XL [Concomitant]
     Dosage: 80MG PER DAY
     Route: 048

REACTIONS (9)
  - FALL [None]
  - FLUID RETENTION [None]
  - GAIT DISTURBANCE [None]
  - GENERALISED OEDEMA [None]
  - HAEMOGLOBIN DECREASED [None]
  - RED BLOOD CELL COUNT ABNORMAL [None]
  - RED BLOOD CELL COUNT DECREASED [None]
  - UPPER RESPIRATORY TRACT INFECTION [None]
  - WHITE BLOOD CELL COUNT DECREASED [None]
